FAERS Safety Report 8826327 (Version 3)
Quarter: 2012Q4

REPORT INFORMATION
  Report Type: Report from Study
  Country: CA (occurrence: CA)
  Receive Date: 20121005
  Receipt Date: 20121220
  Transmission Date: 20130627
  Serious: Yes (Hospitalization)
  Sender: FDA-Public Use
  Company Number: CA-ABBOTT-12P-028-0988849-00

PATIENT
  Age: 45 Year
  Sex: Male
  Weight: 76 kg

DRUGS (2)
  1. HUMIRA PEN [Suspect]
     Route: 058
     Dates: start: 20110407, end: 20120817
  2. HUMIRA PEN [Suspect]
     Dosage: Lastest dose
     Route: 058
     Dates: start: 20120928

REACTIONS (5)
  - Hypoaesthesia [Recovered/Resolved]
  - Palpitations [Recovered/Resolved]
  - Angina pectoris [Recovered/Resolved]
  - Diarrhoea [Not Recovered/Not Resolved]
  - Rash pruritic [Not Recovered/Not Resolved]
